FAERS Safety Report 17574939 (Version 2)
Quarter: 2020Q2

REPORT INFORMATION
  Report Type: Spontaneous
  Country: US (occurrence: US)
  Receive Date: 20200324
  Receipt Date: 20200630
  Transmission Date: 20200713
  Serious: Yes (Hospitalization, Other)
  Sender: FDA-Public Use
  Company Number: US-DRREDDYS-USA/USA/20/0120773

PATIENT
  Age: 60 Year
  Sex: Male

DRUGS (12)
  1. OLANZAPINE TABLETS [Suspect]
     Active Substance: OLANZAPINE
     Indication: PSYCHOTIC SYMPTOM
     Dosage: LOW DOSE, NIGHTLY
  2. LORAZEPAM. [Concomitant]
     Active Substance: LORAZEPAM
     Indication: CATATONIA
     Route: 042
  3. FLUOXETINE [Suspect]
     Active Substance: FLUOXETINE HYDROCHLORIDE
  4. LORAZEPAM. [Concomitant]
     Active Substance: LORAZEPAM
     Dosage: FURTHER ATTEMPTS TO TAPER
  5. SERTRALINE [Concomitant]
     Active Substance: SERTRALINE HYDROCHLORIDE
     Indication: DEPRESSION
     Dosage: TITRATED
  6. AMANTADINE. [Concomitant]
     Active Substance: AMANTADINE HYDROCHLORIDE
     Indication: DEPRESSION
     Dosage: TITRATED
  7. AMANTADINE. [Concomitant]
     Active Substance: AMANTADINE HYDROCHLORIDE
     Dosage: RETITRATION
  8. LORAZEPAM. [Concomitant]
     Active Substance: LORAZEPAM
     Dosage: TAPERED TO 10 MG (TOTAL) DAILY IN 3 DIVIDED DOSES
     Route: 048
  9. LORAZEPAM. [Concomitant]
     Active Substance: LORAZEPAM
     Dosage: TITRATED
     Route: 048
  10. AMANTADINE. [Concomitant]
     Active Substance: AMANTADINE HYDROCHLORIDE
     Dosage: TAPER
  11. FLUOXETINE [Suspect]
     Active Substance: FLUOXETINE HYDROCHLORIDE
     Indication: DEPRESSION
  12. MEMANTINE HYDROCHLORIDE. [Suspect]
     Active Substance: MEMANTINE HYDROCHLORIDE
     Indication: CATATONIA

REACTIONS (8)
  - Catatonia [Unknown]
  - Synovitis [Unknown]
  - Drug intolerance [Unknown]
  - Condition aggravated [Unknown]
  - Psychotic symptom [Unknown]
  - Sedation complication [Unknown]
  - Illusion [Unknown]
  - Withdrawal syndrome [Unknown]
